FAERS Safety Report 5381486-5 (Version None)
Quarter: 2007Q3

REPORT INFORMATION
  Report Type: 
  Country: None (occurrence: None)
  Receive Date: 20070709
  Receipt Date: 20070706
  Transmission Date: 20080115
  Serious: Yes (Death, Hospitalization)
  Sender: FDA-Public Use
  Company Number: US-BAYER-200711018BWH

PATIENT
  Age: 74 Year
  Sex: Male

DRUGS (9)
  1. TRASYLOL [Suspect]
     Indication: CORONARY ARTERY BYPASS
     Dosage: UNIT DOSE: 10000 KIU
     Route: 042
  2. TRASYLOL [Suspect]
     Dosage: UNIT DOSE: 2000000 KIU
     Route: 042
     Dates: start: 20070320, end: 20070320
  3. ALLOPURINOL [Concomitant]
  4. ATENOLOL [Concomitant]
  5. NORVASC [Concomitant]
  6. SIMVASTATIN [Concomitant]
  7. CELEBREX [Concomitant]
  8. FLOMAX [Concomitant]
  9. ASPIRIN [Concomitant]

REACTIONS (2)
  - BLOOD PRESSURE DECREASED [None]
  - CARDIAC ARREST [None]
